FAERS Safety Report 7713984-0 (Version None)
Quarter: 2011Q3

REPORT INFORMATION
  Report Type: 
  Country: None (occurrence: None)
  Receive Date: 20110826
  Receipt Date: 20110818
  Transmission Date: 20111222
  Serious: Yes (Hospitalization, Other)
  Sender: FDA-Public Use
  Company Number: FR-MERCK-1108FRA00093

PATIENT
  Age: 52 Year
  Sex: Male
  Weight: 88 kg

DRUGS (12)
  1. PIOGLITAZONE HYDROCHLORIDE [Concomitant]
     Indication: TYPE 2 DIABETES MELLITUS
     Route: 048
     Dates: start: 20091202, end: 20100422
  2. INSULIN GLARGINE [Concomitant]
     Route: 058
     Dates: start: 20100803, end: 20100920
  3. METFORMIN [Concomitant]
     Indication: TYPE 2 DIABETES MELLITUS
     Route: 048
     Dates: start: 20091202, end: 20100422
  4. PIOGLITAZONE HYDROCHLORIDE [Concomitant]
     Route: 048
     Dates: start: 20100422, end: 20100803
  5. INSULIN GLARGINE [Concomitant]
     Route: 058
     Dates: start: 20100922, end: 20110208
  6. JANUVIA [Suspect]
     Indication: TYPE 2 DIABETES MELLITUS
     Route: 048
     Dates: start: 20091202, end: 20100803
  7. METFORMIN [Concomitant]
     Route: 048
     Dates: start: 20100422, end: 20110412
  8. GLYBURIDE [Concomitant]
     Indication: TYPE 2 DIABETES MELLITUS
     Route: 048
     Dates: start: 20091202, end: 20100920
  9. INSULIN GLARGINE [Concomitant]
     Route: 058
     Dates: start: 20110412
  10. METFORMIN [Concomitant]
     Route: 048
     Dates: start: 20110412
  11. INSULIN GLARGINE [Concomitant]
     Indication: TYPE 2 DIABETES MELLITUS
     Route: 058
     Dates: start: 20091202, end: 20100422
  12. INSULIN GLARGINE [Concomitant]
     Route: 058
     Dates: start: 20110208, end: 20110412

REACTIONS (2)
  - DRUG INEFFECTIVE [None]
  - PANCREATIC CARCINOMA [None]
